FAERS Safety Report 9378888 (Version 1)
Quarter: 2013Q3

REPORT INFORMATION
  Report Type: Spontaneous
  Country: US (occurrence: US)
  Receive Date: 20130702
  Receipt Date: 20130702
  Transmission Date: 20140515
  Serious: Yes (Other)
  Sender: FDA-Public Use
  Company Number: US-PFIZER INC-2013194474

PATIENT
  Age: 37 Year
  Sex: Female
  Weight: 58.96 kg

DRUGS (5)
  1. CHANTIX [Suspect]
     Indication: SMOKING CESSATION THERAPY
     Dosage: 0.5 MG, 2X/DAY
     Dates: start: 20130612, end: 201306
  2. CHANTIX [Suspect]
     Dosage: 1 MG, 2X/DAY
     Dates: start: 201306
  3. NORCO [Suspect]
     Indication: PAIN
     Dosage: 5MG (HYDROCODONE BITARTRATE)/325MG (ACETAMINOPHEN)
  4. MOBIC [Concomitant]
     Indication: INFLAMMATION
     Dosage: 7.5 MG, 1X/DAY
  5. MOBIC [Concomitant]
     Indication: SWELLING

REACTIONS (9)
  - Anger [Unknown]
  - Depression [Unknown]
  - Anxiety [Unknown]
  - Thinking abnormal [Unknown]
  - Sleep disorder [Unknown]
  - Hypersensitivity [Unknown]
  - Fall [Unknown]
  - Nausea [Unknown]
  - Abdominal discomfort [Unknown]
